FAERS Safety Report 18259534 (Version 1)
Quarter: 2020Q3

REPORT INFORMATION
  Report Type: Spontaneous
  Country: DE (occurrence: DE)
  Receive Date: 20200911
  Receipt Date: 20200911
  Transmission Date: 20201103
  Serious: Yes (Death, Life-Threatening, Hospitalization, Other)
  Sender: FDA-Public Use
  Company Number: DE-GILEAD-2020-0494183

PATIENT
  Age: 44 Year
  Sex: Male
  Weight: 186 kg

DRUGS (1)
  1. YESCARTA [Suspect]
     Active Substance: AXICABTAGENE CILOLEUCEL
     Indication: HIGH-GRADE B-CELL LYMPHOMA
     Dosage: 1 DOSAGE FORM
     Route: 042
     Dates: start: 20200713, end: 20200713

REACTIONS (6)
  - Cerebral haemorrhage [Fatal]
  - Pancytopenia [Fatal]
  - High-grade B-cell lymphoma [Fatal]
  - Immune effector cell-associated neurotoxicity syndrome [Fatal]
  - Cytomegalovirus infection reactivation [Fatal]
  - Cytokine release syndrome [Fatal]

NARRATIVE: CASE EVENT DATE: 202007
